FAERS Safety Report 24406094 (Version 1)
Quarter: 2024Q4

REPORT INFORMATION
  Report Type: Spontaneous
  Country: CN (occurrence: CN)
  Receive Date: 20241007
  Receipt Date: 20241007
  Transmission Date: 20250115
  Serious: Yes (Life-Threatening, Hospitalization)
  Sender: PFIZER
  Company Number: CN-PFIZER INC-PV202400129085

PATIENT
  Age: 70 Year
  Sex: Male

DRUGS (2)
  1. CEFOPERAZONE SODIUM\SULBACTAM SODIUM [Suspect]
     Active Substance: CEFOPERAZONE SODIUM\SULBACTAM SODIUM
     Indication: Antiinflammatory therapy
     Dosage: 3 G, 3X/DAY
     Dates: start: 202205
  2. MEROPENEM [Suspect]
     Active Substance: MEROPENEM
     Indication: Antiinflammatory therapy
     Dosage: 1 G, 4X/DAY
     Dates: start: 202205

REACTIONS (2)
  - Off label use [Unknown]
  - Drug ineffective for unapproved indication [Unknown]

NARRATIVE: CASE EVENT DATE: 20220501
